FAERS Safety Report 23303439 (Version 1)
Quarter: 2023Q4

REPORT INFORMATION
  Report Type: Spontaneous
  Country: US (occurrence: US)
  Receive Date: 20231215
  Receipt Date: 20231215
  Transmission Date: 20240109
  Serious: No
  Sender: FDA-Public Use
  Company Number: US-TAKEDA-2023TUS116180

PATIENT
  Sex: Female
  Weight: 57 kg

DRUGS (2)
  1. ICLUSIG [Suspect]
     Active Substance: PONATINIB
     Indication: Blast crisis in myelogenous leukaemia
     Dosage: 45 MILLIGRAM, QD
     Route: 065
     Dates: start: 20231116
  2. ICLUSIG [Suspect]
     Active Substance: PONATINIB
     Indication: Acute myeloid leukaemia

REACTIONS (4)
  - No adverse event [Unknown]
  - Accidental exposure to product [Unknown]
  - Product use issue [Unknown]
  - Off label use [Unknown]
